FAERS Safety Report 19263350 (Version 1)
Quarter: 2021Q2

REPORT INFORMATION
  Report Type: Spontaneous
  Country: CA (occurrence: CA)
  Receive Date: 20210517
  Receipt Date: 20210517
  Transmission Date: 20210717
  Serious: Yes (Other)
  Sender: FDA-Public Use
  Company Number: CA-ROCHE-2828254

PATIENT
  Age: 32 Year
  Sex: Female
  Weight: 110 kg

DRUGS (3)
  1. METHADONE [Concomitant]
     Active Substance: METHADONE HYDROCHLORIDE
     Route: 048
  2. SYNTHROID [Concomitant]
     Active Substance: LEVOTHYROXINE SODIUM
     Indication: HYPOTHYROIDISM
     Route: 048
  3. SOMATROPIN. [Suspect]
     Active Substance: SOMATROPIN
     Indication: GROWTH HORMONE DEFICIENCY
     Route: 058

REACTIONS (6)
  - COVID-19 [Recovered/Resolved]
  - Product prescribing error [Unknown]
  - Therapeutic response unexpected [Recovered/Resolved]
  - Product dose omission issue [Unknown]
  - Incorrect dose administered [Unknown]
  - Weight decreased [Recovered/Resolved]
